FAERS Safety Report 6008579-3 (Version None)
Quarter: 2008Q4

REPORT INFORMATION
  Report Type: 
  Country: None (occurrence: None)
  Receive Date: 20081217
  Receipt Date: 20081212
  Transmission Date: 20090506
  Serious: Yes (Hospitalization)
  Sender: FDA-Public Use
  Company Number: JP-B.I. PHARMACEUTICALS,INC./RIDGEFIELD-2008-BP-17143NB

PATIENT
  Sex: Female
  Weight: 50 kg

DRUGS (9)
  1. BI-SIFROL TABLETS [Suspect]
     Indication: PARKINSON'S DISEASE
     Dosage: 1.5MG
     Route: 048
     Dates: start: 20080805, end: 20081014
  2. LOXONIN [Suspect]
     Indication: PAIN
     Dosage: 60MG
     Route: 048
     Dates: start: 20051101, end: 20081014
  3. VOLTAREN [Suspect]
     Indication: PAIN
     Dosage: 25MG
     Route: 054
     Dates: start: 20051101, end: 20081014
  4. CARBIDOPA + LEVODOPA [Concomitant]
     Indication: PARKINSON'S DISEASE
     Dosage: 300MG
     Route: 048
  5. COMTAN [Concomitant]
     Indication: PARKINSON'S DISEASE
     Dosage: 600MG
     Route: 048
     Dates: start: 20070515
  6. NAUZELIN [Concomitant]
     Indication: NAUSEA
     Dosage: 20MG
     Route: 048
     Dates: start: 20050101
  7. JUVELA N [Concomitant]
     Indication: PERIPHERAL CIRCULATORY FAILURE
     Dosage: 300MG
     Route: 048
     Dates: start: 20050101
  8. ONEALFA [Concomitant]
     Indication: OSTEOPOROSIS
     Dosage: .5MCG
     Route: 048
     Dates: start: 20060130
  9. DIA-KENCHU-TU [Concomitant]
     Dosage: 10G
     Route: 048
     Dates: start: 20060704

REACTIONS (3)
  - BACK PAIN [None]
  - GASTRIC ULCER [None]
  - SOMNOLENCE [None]
